FAERS Safety Report 16405617 (Version 2)
Quarter: 2019Q2

REPORT INFORMATION
  Report Type: Report from Study
  Country: ZA (occurrence: ZA)
  Receive Date: 20190607
  Receipt Date: 20190611
  Transmission Date: 20190711
  Serious: No
  Sender: FDA-Public Use
  Company Number: ZA-ASTRAZENECA-2019SE82413

PATIENT
  Sex: Male

DRUGS (7)
  1. ALTOSEC [Concomitant]
     Active Substance: OMEPRAZOLE
     Indication: ILL-DEFINED DISORDER
     Dosage: 20 MG
     Dates: start: 20190412
  2. FORXIGA [Suspect]
     Active Substance: DAPAGLIFLOZIN
     Indication: BLOOD GLUCOSE INCREASED
     Dosage: 10.0MG UNKNOWN
     Route: 048
     Dates: start: 20190412, end: 20190531
  3. PREXUM [Concomitant]
     Active Substance: PERINDOPRIL ERBUMINE
     Indication: HYPERTENSION
     Dosage: 5 MG
     Dates: start: 20190412
  4. ASPRIN [Concomitant]
     Active Substance: ASPIRIN
     Dates: start: 20190412
  5. FINCAR [Concomitant]
     Active Substance: FINASTERIDE
     Indication: BENIGN PROSTATIC HYPERPLASIA
     Dosage: 5 MG
     Dates: start: 20190412
  6. GLUCOPHAGE [Concomitant]
     Active Substance: METFORMIN HYDROCHLORIDE
     Indication: DIABETES MELLITUS
     Dates: start: 20190412
  7. ASPAVOR [Concomitant]
     Active Substance: ATORVASTATIN
     Dosage: 20 MG
     Dates: start: 20190412

REACTIONS (6)
  - Candida infection [Recovering/Resolving]
  - Genital tract inflammation [Recovering/Resolving]
  - Urine abnormality [Recovering/Resolving]
  - Genital rash [Not Recovered/Not Resolved]
  - Micturition disorder [Recovering/Resolving]
  - Phimosis [Not Recovered/Not Resolved]
